FAERS Safety Report 8621538-7 (Version None)
Quarter: 2012Q3

REPORT INFORMATION
  Report Type: 
  Country: None (occurrence: None)
  Receive Date: 20120824
  Receipt Date: 20120810
  Transmission Date: 20120928
  Serious: No
  Sender: FDA-Public Use
  Company Number: US-009507513-1208USA005711

PATIENT

DRUGS (1)
  1. REMERON [Suspect]
     Indication: INSOMNIA
     Dosage: 1 MG, QD
     Route: 048

REACTIONS (3)
  - VISUAL IMPAIRMENT [None]
  - OFF LABEL USE [None]
  - UNDERDOSE [None]
